FAERS Safety Report 13188039 (Version 2)
Quarter: 2018Q3

REPORT INFORMATION
  Report Type: Report from Study
  Country: None (occurrence: US)
  Receive Date: 20170206
  Receipt Date: 20180710
  Transmission Date: 20181010
  Serious: Yes (Other)
  Sender: FDA-Public Use
  Company Number: US-ABBVIE-17K-163-1856153-00

PATIENT
  Sex: Female

DRUGS (2)
  1. HUMIRA [Suspect]
     Active Substance: ADALIMUMAB
     Indication: PSORIASIS
  2. HUMIRA [Suspect]
     Active Substance: ADALIMUMAB
     Indication: ANKYLOSING SPONDYLITIS
     Route: 058

REACTIONS (9)
  - Monoplegia [Unknown]
  - Drug ineffective [Unknown]
  - Drug specific antibody present [Not Recovered/Not Resolved]
  - Corneal abrasion [Unknown]
  - Eyelid ptosis [Unknown]
  - Systemic lupus erythematosus [Not Recovered/Not Resolved]
  - Unevaluable event [Unknown]
  - Colitis ulcerative [Unknown]
  - Gastrooesophageal reflux disease [Not Recovered/Not Resolved]
